FAERS Safety Report 4603941-5 (Version None)
Quarter: 2005Q1

REPORT INFORMATION
  Report Type: 
  Country: None (occurrence: None)
  Receive Date: 20050309
  Receipt Date: 20050224
  Transmission Date: 20050727
  Serious: Yes (Hospitalization)
  Sender: FDA-Public Use
  Company Number: 2005036945

PATIENT
  Age: 29 Year
  Sex: Female
  Weight: 77.1115 kg

DRUGS (1)
  1. UNISOM [Suspect]
     Dosage: APPROXIMATELY 30 GELCAPS ONCE, ORAL
     Route: 048
     Dates: start: 20050224, end: 20050224

REACTIONS (6)
  - DIZZINESS [None]
  - LOSS OF CONSCIOUSNESS [None]
  - OVERDOSE [None]
  - SNORING [None]
  - TREMOR [None]
  - VOMITING [None]
